FAERS Safety Report 6458992-5 (Version None)
Quarter: 2009Q4

REPORT INFORMATION
  Report Type: 
  Country: None (occurrence: None)
  Receive Date: 20091125
  Receipt Date: 20091125
  Transmission Date: 20100525
  Serious: No
  Sender: FDA-Public Use
  Company Number: None

PATIENT
  Age: 68 Year
  Sex: Female
  Weight: 70.7611 kg

DRUGS (4)
  1. LEVAQUIN [Suspect]
     Indication: BRONCHITIS
     Dosage: 7 1 DAILY (BOTH TIMES)
     Dates: start: 20080604
  2. LEVAQUIN [Suspect]
     Indication: PNEUMONIA
     Dosage: 7 1 DAILY (BOTH TIMES)
     Dates: start: 20080604
  3. LEVAQUIN [Suspect]
     Indication: BRONCHITIS
     Dosage: 7 1 DAILY (BOTH TIMES)
     Dates: start: 20090831
  4. LEVAQUIN [Suspect]
     Indication: PNEUMONIA
     Dosage: 7 1 DAILY (BOTH TIMES)
     Dates: start: 20090831

REACTIONS (5)
  - GASTRIC ULCER [None]
  - GASTROOESOPHAGEAL REFLUX DISEASE [None]
  - OEDEMA PERIPHERAL [None]
  - PRODUCT QUALITY ISSUE [None]
  - TENDON PAIN [None]
